FAERS Safety Report 13892714 (Version 1)
Quarter: 2017Q3

REPORT INFORMATION
  Report Type: Spontaneous
  Country: US (occurrence: US)
  Receive Date: 20170822
  Receipt Date: 20170822
  Transmission Date: 20171127
  Serious: Yes (Hospitalization)
  Sender: FDA-Public Use
  Company Number: US-ROCHE-1298784

PATIENT
  Age: 88 Year
  Sex: Female

DRUGS (2)
  1. HERCEPTIN [Suspect]
     Active Substance: TRASTUZUMAB
     Indication: BREAST CANCER METASTATIC
     Route: 042
  2. RITUXAN [Suspect]
     Active Substance: RITUXIMAB
     Indication: BREAST CANCER STAGE IV
     Route: 065

REACTIONS (4)
  - Incontinence [Not Recovered/Not Resolved]
  - Urinary tract infection [Recovered/Resolved]
  - Urine odour abnormal [Not Recovered/Not Resolved]
  - Pollakiuria [Not Recovered/Not Resolved]
